FAERS Safety Report 5124745-3 (Version None)
Quarter: 2006Q4

REPORT INFORMATION
  Report Type: 
  Country: None (occurrence: None)
  Receive Date: 20061006
  Receipt Date: 20061003
  Transmission Date: 20070319
  Serious: Yes (Life-Threatening, Hospitalization)
  Sender: FDA-Public Use
  Company Number: LTI2006A00228

PATIENT
  Age: 43 Year
  Sex: Female

DRUGS (6)
  1. ACTOS [Suspect]
     Indication: DIABETES MELLITUS NON-INSULIN-DEPENDENT
     Dosage: 30 MG (30 MG, 1-1); ORAL
     Route: 048
     Dates: start: 20060228, end: 20060801
  2. ACTOS [Suspect]
     Indication: DIABETES MELLITUS NON-INSULIN-DEPENDENT
     Dosage: 15 MG (15 MG, 1 IN 1 D); ORAL
     Route: 048
     Dates: start: 20060228, end: 20060801
  3. DIAMICRON (GLICLAZIDE) [Concomitant]
  4. GLUCOPHAGE [Concomitant]
  5. PERINDOPRIL ERBUMINE [Concomitant]
  6. ATORVASTATIN CALCIUM [Concomitant]

REACTIONS (1)
  - ACUTE PULMONARY OEDEMA [None]
